FAERS Safety Report 12617499 (Version 1)
Quarter: 2016Q3

REPORT INFORMATION
  Report Type: Spontaneous
  Country: US (occurrence: None)
  Receive Date: 20160802
  Receipt Date: 20160802
  Transmission Date: 20161109
  Serious: Yes (Disabling)
  Sender: FDA-Public Use
  Company Number: None

PATIENT
  Age: 60 Year
  Sex: Female
  Weight: 88 kg

DRUGS (3)
  1. LYRICA [Suspect]
     Active Substance: PREGABALIN
     Indication: HERPES ZOSTER
     Dosage: 28 CAPSULE(S) TWICE A DAY TAKEN BY MOUTH
     Route: 048
     Dates: start: 20160731
  2. HCTZ [Concomitant]
     Active Substance: HYDROCHLOROTHIAZIDE
  3. VITAMIN [Concomitant]
     Active Substance: VITAMINS

REACTIONS (8)
  - Fatigue [None]
  - Feeling abnormal [None]
  - Impaired work ability [None]
  - Disturbance in attention [None]
  - Gait disturbance [None]
  - Dizziness [None]
  - Nausea [None]
  - Asthenia [None]

NARRATIVE: CASE EVENT DATE: 20160801
